FAERS Safety Report 8607884 (Version 4)
Quarter: 2014Q1

REPORT INFORMATION
  Report Type: Spontaneous
  Country: US (occurrence: US)
  Receive Date: 20120611
  Receipt Date: 20140113
  Transmission Date: 20141002
  Serious: Yes (Hospitalization)
  Sender: FDA-Public Use
  Company Number: US-ASTRAZENECA-2012SE35187

PATIENT
  Age: 65 Year
  Sex: Female
  Weight: 77.6 kg

DRUGS (9)
  1. NEXIUM [Suspect]
     Indication: GASTROOESOPHAGEAL REFLUX DISEASE
     Route: 048
     Dates: start: 2002, end: 2011
  2. NEXIUM [Suspect]
     Indication: GASTROOESOPHAGEAL REFLUX DISEASE
     Route: 048
     Dates: start: 20101208
  3. TRAMADOL HCL [Concomitant]
     Dates: start: 20101208
  4. LISINOPRIL [Concomitant]
     Indication: BLOOD PRESSURE
     Dates: start: 20101208
  5. ALBUTEROL SULFATE [Concomitant]
  6. VENTOLIN [Concomitant]
     Indication: ASTHMA
  7. DEXILANT [Concomitant]
     Indication: GASTROOESOPHAGEAL REFLUX DISEASE
  8. FOSAMAX [Concomitant]
     Indication: GASTROOESOPHAGEAL REFLUX DISEASE
  9. TRAMIDOL [Concomitant]
     Indication: PAIN

REACTIONS (9)
  - Cardiac disorder [Unknown]
  - Localised infection [Unknown]
  - Osteoporosis [Unknown]
  - Spinal fracture [Unknown]
  - Cataract [Unknown]
  - Glaucoma [Unknown]
  - Vitamin D deficiency [Unknown]
  - Back disorder [Unknown]
  - Osteopenia [Unknown]
